FAERS Safety Report 7412143-9 (Version None)
Quarter: 2011Q2

REPORT INFORMATION
  Report Type: 
  Country: None (occurrence: None)
  Receive Date: 20110413
  Receipt Date: 20110405
  Transmission Date: 20111010
  Serious: Yes (Hospitalization)
  Sender: FDA-Public Use
  Company Number: JP-CEPHALON-2011001752

PATIENT
  Age: 82 Year
  Sex: Male

DRUGS (6)
  1. RAMOSETRON HYDROCHLORIDE [Concomitant]
  2. RITUXIMAB [Concomitant]
     Indication: MANTLE CELL LYMPHOMA
     Dates: start: 20110118, end: 20110315
  3. DEXAMETHASONE SODIUM PHOSPHATE [Concomitant]
  4. BENDAMUSTINE HCL [Suspect]
     Indication: MANTLE CELL LYMPHOMA
     Route: 042
     Dates: start: 20110119, end: 20110317
  5. HEPARIN SODIUM [Concomitant]
  6. BENDAMUSTINE HCL [Suspect]
     Route: 042
     Dates: start: 20110316, end: 20110317

REACTIONS (1)
  - PNEUMOCYSTIS JIROVECI PNEUMONIA [None]
